FAERS Safety Report 13890635 (Version 1)
Quarter: 2017Q3

REPORT INFORMATION
  Report Type: Spontaneous
  Country: PL (occurrence: PL)
  Receive Date: 20170822
  Receipt Date: 20170822
  Transmission Date: 20171127
  Serious: Yes (Hospitalization)
  Sender: FDA-Public Use
  Company Number: PL-BAYER-2017-154495

PATIENT
  Age: 41 Year
  Sex: Female

DRUGS (1)
  1. BETAFERON [Suspect]
     Active Substance: INTERFERON BETA-1B
     Indication: MULTIPLE SCLEROSIS
     Dosage: 250 ?G, UNK
     Route: 058
     Dates: start: 20160216, end: 20170807

REACTIONS (4)
  - Drug ineffective [None]
  - Cerebellar syndrome [None]
  - Gait disturbance [None]
  - Paraparesis [None]

NARRATIVE: CASE EVENT DATE: 20170711
